FAERS Safety Report 4920559-5 (Version None)
Quarter: 2006Q1

REPORT INFORMATION
  Report Type: 
  Country: None (occurrence: None)
  Receive Date: 20060113
  Receipt Date: 20051011
  Transmission Date: 20060701
  Serious: No
  Sender: FDA-Public Use
  Company Number: 2005SP003452

PATIENT
  Age: 73 Year
  Sex: Female
  Weight: 69.4003 kg

DRUGS (5)
  1. LUNESTA [Suspect]
     Indication: INSOMNIA
     Dosage: 3 MG;HS;ORAL
     Route: 048
     Dates: start: 20050929, end: 20050929
  2. TYLENOL (CAPLET) [Concomitant]
  3. DARVOCET [Concomitant]
  4. SYNTHROID [Concomitant]
  5. LORCET-HD [Concomitant]

REACTIONS (5)
  - DIZZINESS [None]
  - DRUG INEFFECTIVE [None]
  - DYSGEUSIA [None]
  - INSOMNIA [None]
  - NAUSEA [None]
